FAERS Safety Report 9338302 (Version 1)
Quarter: 2013Q2

REPORT INFORMATION
  Report Type: Spontaneous
  Country: US (occurrence: US)
  Receive Date: 20130610
  Receipt Date: 20130610
  Transmission Date: 20140414
  Serious: No
  Sender: FDA-Public Use
  Company Number: US-PFIZER INC-2013171823

PATIENT
  Sex: Male
  Weight: 79.37 kg

DRUGS (5)
  1. NORVASC [Suspect]
     Indication: HYPERTENSION
     Dosage: 5 MG, 1X/DAY
  2. CALAN SR [Suspect]
     Indication: HYPERTENSION
     Dosage: 240 MG, 1X/DAY
     Dates: start: 1990
  3. LORCET PLUS [Suspect]
     Indication: BACK PAIN
     Dosage: 7.5/650MG
  4. FLOMAX [Concomitant]
     Indication: PROSTATOMEGALY
     Dosage: 0.4 MG, 1X/DAY
     Dates: start: 2013
  5. VALIUM [Concomitant]
     Indication: ANXIETY
     Dosage: 5 MG, 1X/DAY

REACTIONS (3)
  - High density lipoprotein increased [Unknown]
  - Low density lipoprotein increased [Unknown]
  - Drug ineffective [Recovered/Resolved]
